FAERS Safety Report 8596407 (Version 3)
Quarter: 2012Q4

REPORT INFORMATION
  Report Type: 
  Country: US (occurrence: US)
  Receive Date: 20120605
  Receipt Date: 20120927
  Transmission Date: 20130627
  Serious: Yes (Death)
  Sender: FDA-Public Use
  Company Number: US-PFIZER INC-2012132370

PATIENT
  Age: 65 Year
  Sex: Female

DRUGS (1)
  1. SUTENT [Suspect]
     Indication: RENAL CANCER
     Dosage: 50 mg, 1x/day, 4 weeks on/ 2weeks off
     Route: 048
     Dates: start: 20120126

REACTIONS (5)
  - Disease progression [Fatal]
  - Metastatic renal cell carcinoma [Fatal]
  - Renal failure [Fatal]
  - Asthenia [Not Recovered/Not Resolved]
  - Performance status decreased [Unknown]
